FAERS Safety Report 6781606-1 (Version None)
Quarter: 2010Q2

REPORT INFORMATION
  Report Type: 
  Country: None (occurrence: None)
  Receive Date: 20100617
  Receipt Date: 20100617
  Transmission Date: 20101027
  Serious: Yes (Disabling)
  Sender: FDA-Public Use
  Company Number: None

PATIENT
  Age: 82 Year
  Sex: Male
  Weight: 50 kg

DRUGS (17)
  1. ZESTRIL [Suspect]
  2. KAYEXELATE SUSP [Concomitant]
  3. TYLENOL [Concomitant]
  4. MOM [Concomitant]
  5. MAALOX PLUS UD LIQ [Concomitant]
  6. ATIVAN [Concomitant]
  7. NITROSTAT [Concomitant]
  8. MORPHINE [Concomitant]
  9. PHENERGAN [Concomitant]
  10. ZOFRAN [Concomitant]
  11. LORTAB [Concomitant]
  12. AMBIEN [Concomitant]
  13. CARDIZEM [Concomitant]
  14. COLACE [Concomitant]
  15. IMDUR [Concomitant]
  16. SYMBICORT [Concomitant]
  17. WELCHOL [Concomitant]

REACTIONS (1)
  - RENAL FAILURE ACUTE [None]
